FAERS Safety Report 6882147-3 (Version None)
Quarter: 2010Q3

REPORT INFORMATION
  Report Type: 
  Country: None (occurrence: None)
  Receive Date: 20100729
  Receipt Date: 20100722
  Transmission Date: 20110219
  Serious: Yes (Hospitalization)
  Sender: FDA-Public Use
  Company Number: GB-WYE-G06448910

PATIENT
  Age: 72 Year
  Sex: Female

DRUGS (5)
  1. IBUPROFEN TABLETS [Suspect]
     Indication: TOOTHACHE
     Route: 048
     Dates: start: 20100703, end: 20100705
  2. IBUPROFEN TABLETS [Suspect]
     Indication: INFLAMMATION
     Route: 048
     Dates: start: 20100706, end: 20100708
  3. GLUCOSAMINE [Concomitant]
     Dosage: UNKNOWN
  4. EZETIMIBE/SIMVASTATIN [Concomitant]
     Indication: BLOOD CHOLESTEROL INCREASED
  5. COD-LIVER [Concomitant]
     Dosage: UNKNOWN

REACTIONS (4)
  - DYSPHAGIA [None]
  - HYPOAESTHESIA ORAL [None]
  - OVERDOSE [None]
  - SWOLLEN TONGUE [None]
